FAERS Safety Report 5465651-4 (Version None)
Quarter: 2007Q3

REPORT INFORMATION
  Report Type: 
  Country: None (occurrence: None)
  Receive Date: 20070924
  Receipt Date: 20070912
  Transmission Date: 20080115
  Serious: Yes (Hospitalization)
  Sender: FDA-Public Use
  Company Number: US-AMGEN-STX243122

PATIENT
  Sex: Female

DRUGS (1)
  1. ENBREL [Suspect]
     Indication: PSORIASIS
     Route: 065
     Dates: start: 20070601

REACTIONS (5)
  - CHEST PAIN [None]
  - INFECTION [None]
  - PSORIASIS [None]
  - PYREXIA [None]
  - SURGERY [None]
